FAERS Safety Report 6610864-9 (Version None)
Quarter: 2010Q1

REPORT INFORMATION
  Report Type: 
  Country: None (occurrence: None)
  Receive Date: 20100302
  Receipt Date: 20100226
  Transmission Date: 20100710
  Serious: Yes (Disabling, Other)
  Sender: FDA-Public Use
  Company Number: US-MERCK-0903USA00095

PATIENT
  Age: 77 Year
  Sex: Female
  Weight: 65 kg

DRUGS (8)
  1. FOSAMAX [Suspect]
     Indication: OSTEOPOROSIS
     Route: 048
     Dates: start: 20010420, end: 20080308
  2. CALCIUM (UNSPECIFIED) AND VITAMIN D (UNSPECIFIED) [Concomitant]
     Route: 065
  3. ASPIRIN [Concomitant]
     Route: 065
     Dates: start: 19960101
  4. GLIPIZIDE [Concomitant]
     Indication: TYPE 2 DIABETES MELLITUS
     Route: 065
     Dates: start: 19960101
  5. METFORMIN [Concomitant]
     Indication: TYPE 2 DIABETES MELLITUS
     Route: 065
     Dates: start: 19960101
  6. METOPROLOL [Concomitant]
     Indication: HYPERTENSION
     Route: 065
     Dates: start: 19960101
  7. SIMVASTATIN [Concomitant]
     Indication: BLOOD CHOLESTEROL INCREASED
     Route: 065
     Dates: start: 19960101
  8. BENAZEPRIL HYDROCHLORIDE [Concomitant]
     Indication: HYPERTENSION
     Route: 065
     Dates: start: 19960101

REACTIONS (14)
  - ABSCESS [None]
  - ALVEOLAR OSTEITIS [None]
  - ANXIETY [None]
  - BONE DENSITY DECREASED [None]
  - BREAST CANCER [None]
  - BREAST CANCER FEMALE [None]
  - DENTAL FISTULA [None]
  - DEPRESSION [None]
  - GASTRIC CANCER [None]
  - IMPAIRED HEALING [None]
  - INSOMNIA [None]
  - MULTIPLE INJURIES [None]
  - OSTEOMYELITIS [None]
  - OSTEONECROSIS [None]
